FAERS Safety Report 6161517 (Version 2)
Quarter: 2013Q2

REPORT INFORMATION
  Report Type: Spontaneous
  Country: US (occurrence: US)
  Receive Date: 20061103
  Receipt Date: 20130523
  Transmission Date: 20140414
  Serious: Yes (Other)
  Sender: FDA-Public Use
  Company Number: US-ELI_LILLY_AND_COMPANY-US200610003946

PATIENT
  Sex: Female

DRUGS (9)
  1. CYMBALTA [Suspect]
     Indication: ANXIETY
     Dosage: 60 MG, EACH MORNING
     Dates: start: 2005
  2. CYMBALTA [Suspect]
     Dosage: 90 MG, UNK
     Dates: end: 2011
  3. NEURONTIN                               /UNK/ [Concomitant]
  4. XANAX                                   /USA/ [Concomitant]
  5. TRAZODIL [Concomitant]
  6. LEVONORGESTREL W/ETHINYLESTRADIOL [Concomitant]
     Indication: ORAL CONTRACEPTION
  7. ZYRTEC                                  /GFR/ [Concomitant]
  8. GUAIFENESIN [Concomitant]
  9. ULTRAM [Concomitant]
     Dosage: UNK UNK, AS NEEDED

REACTIONS (4)
  - Haemangioma [Not Recovered/Not Resolved]
  - Pyrexia [Not Recovered/Not Resolved]
  - Malaise [Not Recovered/Not Resolved]
  - Libido decreased [Not Recovered/Not Resolved]
